FAERS Safety Report 5953867-X (Version None)
Quarter: 2008Q4

REPORT INFORMATION
  Report Type: 
  Country: None (occurrence: None)
  Receive Date: 20081114
  Receipt Date: 20081110
  Transmission Date: 20090506
  Serious: Yes (Hospitalization)
  Sender: FDA-Public Use
  Company Number: AU-ASTRAZENECA-2008AP07612

PATIENT
  Age: 31 Year
  Sex: Female
  Weight: 50 kg

DRUGS (2)
  1. SEROQUEL [Suspect]
     Indication: SCHIZOPHRENIA
     Route: 048
     Dates: start: 20080402, end: 20080610
  2. SEROQUEL [Suspect]
     Dosage: REDUCED DOSE
     Route: 048
     Dates: start: 20080909

REACTIONS (2)
  - ANXIETY [None]
  - TACHYCARDIA [None]
